FAERS Safety Report 10368637 (Version 1)
Quarter: 2014Q3

REPORT INFORMATION
  Report Type: Spontaneous
  Country: GB (occurrence: GB)
  Receive Date: 20140807
  Receipt Date: 20140807
  Transmission Date: 20150326
  Serious: Yes (Other)
  Sender: FDA-Public Use
  Company Number: GB-BAYER-2014-114749

PATIENT
  Age: 86 Year
  Sex: Female

DRUGS (10)
  1. LEVOTHYROXINE [Concomitant]
     Active Substance: LEVOTHYROXINE
  2. METFORMIN [Concomitant]
     Active Substance: METFORMIN HYDROCHLORIDE
  3. DIGOXIN [DIGOXIN] [Concomitant]
     Active Substance: DIGOXIN
  4. TRAVOPROST [Concomitant]
     Active Substance: TRAVOPROST
  5. CANDESARTAN [Concomitant]
     Active Substance: CANDESARTAN
  6. SIMVASTATIN. [Concomitant]
     Active Substance: SIMVASTATIN
  7. FUROSEMIDE [FUROSEMIDE] [Concomitant]
  8. ACETYLSALICYLIC ACID (} 100 MG) [Suspect]
     Active Substance: ASPIRIN
     Indication: ANTICOAGULANT THERAPY
     Dosage: UNK
  9. APIXABAN [Interacting]
     Active Substance: APIXABAN
     Indication: ATRIAL FIBRILLATION
     Dosage: 2.5 MG, QD
     Route: 048
  10. VENTOLIN [SALBUTAMOL] [Concomitant]

REACTIONS (3)
  - Drug interaction [None]
  - Drug ineffective [None]
  - Retinal artery thrombosis [Unknown]

NARRATIVE: CASE EVENT DATE: 20140718
